FAERS Safety Report 6999084-6 (Version None)
Quarter: 2010Q3

REPORT INFORMATION
  Report Type: 
  Country: None (occurrence: None)
  Receive Date: 20100920
  Receipt Date: 20100913
  Transmission Date: 20110219
  Serious: Yes (Hospitalization)
  Sender: FDA-Public Use
  Company Number: US-BAYER-201021971NA

PATIENT
  Age: 68 Year
  Sex: Male

DRUGS (20)
  1. DACARBAZINE [Suspect]
     Indication: MALIGNANT MELANOMA
     Dosage: RECEIVED '4 COURSES' NOS
     Route: 042
     Dates: start: 20090305, end: 20090512
  2. IPILIMUMAB [Suspect]
     Indication: MALIGNANT MELANOMA
     Dosage: RECEIVED '7 COURSES' NOS
     Route: 042
     Dates: start: 20090305, end: 20100126
  3. CORTEF [Concomitant]
     Dates: start: 20090623
  4. TESSALON [Concomitant]
     Dates: start: 20090305
  5. PROTONIX [Concomitant]
     Dates: start: 20090623
  6. KENALOG [Concomitant]
     Dates: start: 20100126
  7. BENICAR [Concomitant]
  8. SYNTHROID [Concomitant]
  9. LIPITOR [Concomitant]
  10. ZOLOFT [Concomitant]
  11. MULTI-VITAMIN [Concomitant]
  12. TYLENOL PM [Concomitant]
  13. ZOFRAN [Concomitant]
  14. IMODIUM [Concomitant]
  15. ATIVAN [Concomitant]
  16. KYTRIL [Concomitant]
  17. NEUPOGEN [Concomitant]
  18. THORAZINE [Concomitant]
  19. COMPAZINE [Concomitant]
  20. ROBITUSSIN [Concomitant]

REACTIONS (5)
  - HYPOKALAEMIA [None]
  - HYPOTENSION [None]
  - MENINGITIS ASEPTIC [None]
  - NAUSEA [None]
  - PYREXIA [None]
